FAERS Safety Report 23852627 (Version 1)
Quarter: 2024Q2

REPORT INFORMATION
  Report Type: Spontaneous
  Country: US (occurrence: None)
  Receive Date: 20240513
  Receipt Date: 20240513
  Transmission Date: 20240716
  Serious: Yes (Hospitalization)
  Sender: FDA-Public Use
  Company Number: None

PATIENT
  Age: 71 Year
  Sex: Male

DRUGS (10)
  1. TACROLIMUS [Suspect]
     Active Substance: TACROLIMUS
     Indication: Lung transplant
     Dosage: 3 MG TWICE A DAY ORAL
     Route: 048
  2. AZITHROMYCIN [Concomitant]
  3. Calcium citrate + D3 tablets [Concomitant]
  4. GABAPENTIN [Concomitant]
  5. MAG OXIDE [Concomitant]
  6. Metoprolol ER [Concomitant]
  7. OMEPRAZOLE [Concomitant]
  8. PRAVASTATIN [Concomitant]
  9. PREDNISONE [Concomitant]
  10. Multivitamin with Iron tabs [Concomitant]

REACTIONS (1)
  - Illness [None]

NARRATIVE: CASE EVENT DATE: 20240510
